FAERS Safety Report 19956098 (Version 1)
Quarter: 2021Q4

REPORT INFORMATION
  Report Type: Spontaneous
  Country: ES (occurrence: ES)
  Receive Date: 20211014
  Receipt Date: 20211014
  Transmission Date: 20220303
  Serious: Yes (Hospitalization)
  Sender: FDA-Public Use
  Company Number: ES-CUBIST PHARMACEUTICALS, INC.-2014CBST000303

PATIENT
  Age: 67 Year
  Sex: Male

DRUGS (3)
  1. CUBICIN [Suspect]
     Active Substance: DAPTOMYCIN
     Indication: Endocarditis enterococcal
     Dosage: 10 MG/KG, DAILY
     Route: 042
  2. CUBICIN [Suspect]
     Active Substance: DAPTOMYCIN
     Indication: Endocarditis
  3. CUBICIN [Suspect]
     Active Substance: DAPTOMYCIN
     Indication: Off label use

REACTIONS (2)
  - Enterococcal bacteraemia [Recovered/Resolved]
  - Drug ineffective for unapproved indication [Unknown]
